FAERS Safety Report 11259478 (Version 1)
Quarter: 2015Q3

REPORT INFORMATION
  Report Type: Spontaneous
  Country: US (occurrence: US)
  Receive Date: 20150710
  Receipt Date: 20150710
  Transmission Date: 20151125
  Serious: No
  Sender: FDA-Public Use
  Company Number: US-BRISTOL-MYERS SQUIBB COMPANY-BMS-2015-044832

PATIENT
  Sex: Male

DRUGS (1)
  1. BARACLUDE [Suspect]
     Active Substance: ENTECAVIR
     Indication: HEPATITIS B
     Route: 065

REACTIONS (6)
  - Abdominal discomfort [Recovered/Resolved]
  - Muscle injury [Not Recovered/Not Resolved]
  - Skin discolouration [Unknown]
  - Dry skin [Unknown]
  - Pruritus [Unknown]
  - Feeling cold [Unknown]
